FAERS Safety Report 8843620 (Version 1)
Quarter: 2012Q4

REPORT INFORMATION
  Report Type: 
  Country: US (occurrence: US)
  Receive Date: 20121016
  Receipt Date: 20121016
  Transmission Date: 20130627
  Serious: No
  Sender: FDA-Public Use
  Company Number: US-VERTEX PHARMACEUTICAL INC.-2012-022195

PATIENT
  Sex: Female
  Weight: 111 kg

DRUGS (12)
  1. VX-950 [Suspect]
     Indication: HEPATITIS C
     Dosage: 750 mg, tid
     Route: 048
     Dates: start: 20120813
  2. PEGASYS [Concomitant]
     Indication: HEPATITIS C
     Dosage: 180 ?g, qw
     Route: 058
     Dates: start: 20120813
  3. RIBASPHERE [Concomitant]
     Indication: HEPATITIS C
     Dosage: 1 DF, UNK
     Dates: start: 20120813
  4. VALCYTE [Concomitant]
  5. LASIX                              /00032601/ [Concomitant]
  6. FLUOXETINE [Concomitant]
  7. URSODIOL [Concomitant]
     Dosage: UNK, tid
  8. NEXIUM                             /01479302/ [Concomitant]
     Dosage: UNK, qd
  9. SODIUM BICARB.PED [Concomitant]
     Dosage: UNK, tid
  10. SPIRONOLACTONE [Concomitant]
  11. PROGRAF [Concomitant]
     Dosage: UNK, bid
  12. MAGNESIUM OXIDE [Concomitant]

REACTIONS (1)
  - Neutropenia [Unknown]
